FAERS Safety Report 24273183 (Version 1)
Quarter: 2024Q3

REPORT INFORMATION
  Report Type: Spontaneous
  Country: FR (occurrence: FR)
  Receive Date: 20240902
  Receipt Date: 20240902
  Transmission Date: 20241017
  Serious: Yes (Disabling)
  Sender: ACCORD
  Company Number: None

PATIENT
  Age: 80 Year
  Sex: Female

DRUGS (1)
  1. ATORVASTATIN [Suspect]
     Active Substance: ATORVASTATIN
     Indication: Dyslipidaemia
     Dosage: 10 MG/D, FILM-COATED TABLET, ACCORD
     Dates: start: 20190630

REACTIONS (4)
  - Muscle rupture [Unknown]
  - Blood creatine phosphokinase increased [Recovering/Resolving]
  - Tendonitis [Recovering/Resolving]
  - Tendon rupture [Recovering/Resolving]

NARRATIVE: CASE EVENT DATE: 20240201
